FAERS Safety Report 11201547 (Version 2)
Quarter: 2015Q2

REPORT INFORMATION
  Report Type: Spontaneous
  Country: US (occurrence: None)
  Receive Date: 20150608
  Receipt Date: 20150617
  Transmission Date: 20150821
  Serious: Yes (Hospitalization)
  Sender: FDA-Public Use
  Company Number: 1713747-2015-999170

PATIENT
  Age: 77 Year
  Sex: Male

DRUGS (23)
  1. LIBERTY CYCLER [Concomitant]
     Active Substance: DEVICE
  2. PLAVIX [Concomitant]
     Active Substance: CLOPIDOGREL BISULFATE
  3. LOPRESSOR [Concomitant]
     Active Substance: METOPROLOL TARTRATE
  4. LIBERTY CYCLER CASSETTE [Concomitant]
     Active Substance: DEVICE
  5. ZEMPLAR [Concomitant]
     Active Substance: PARICALCITOL
  6. ASPIRIN. [Concomitant]
     Active Substance: ASPIRIN
  7. MULTIVITAMIN [Concomitant]
     Active Substance: VITAMINS
  8. SENSIPAR [Concomitant]
     Active Substance: CINACALCET HYDROCHLORIDE
  9. LISINOPRIL. [Concomitant]
     Active Substance: LISINOPRIL
  10. ALLOPURINOL. [Concomitant]
     Active Substance: ALLOPURINOL
  11. LASIX [Concomitant]
     Active Substance: FUROSEMIDE
  12. RENVELA [Concomitant]
     Active Substance: SEVELAMER CARBONATE
  13. PROTONIX [Concomitant]
     Active Substance: PANTOPRAZOLE SODIUM
  14. EPOETIN [Concomitant]
     Active Substance: ERYTHROPOIETIN
  15. CALCITROL [Concomitant]
     Active Substance: CALCITRIOL
  16. COREG [Concomitant]
     Active Substance: CARVEDILOL
  17. LIPITOR [Concomitant]
     Active Substance: ATORVASTATIN CALCIUM
  18. LORATADINE. [Concomitant]
     Active Substance: LORATADINE
  19. TAMSULOSIN [Concomitant]
     Active Substance: TAMSULOSIN
  20. FISH OIL [Concomitant]
     Active Substance: FISH OIL
  21. DELFLEX [Suspect]
     Active Substance: CALCIUM CHLORIDE\DEXTROSE MONOHYDRATE\MAGNESIUM CHLORIDE\SODIUM CHLORIDE\SODIUM LACTATE
     Indication: PERITONEAL DIALYSIS
     Route: 033
  22. SENNA [Concomitant]
     Active Substance: SENNA LEAF\SENNOSIDES\SENNOSIDES A AND B
  23. ALLEGRA [Concomitant]
     Active Substance: FEXOFENADINE HYDROCHLORIDE

REACTIONS (11)
  - Prostatitis [None]
  - Oedema [None]
  - Fluid overload [None]
  - Asthenia [None]
  - Acute myocardial infarction [None]
  - Urinary tract infection fungal [None]
  - Body temperature increased [None]
  - Electrolyte imbalance [None]
  - Hypotension [None]
  - Decreased appetite [None]
  - Haematuria [None]

NARRATIVE: CASE EVENT DATE: 20150430
